FAERS Safety Report 8324776-6 (Version None)
Quarter: 2012Q2

REPORT INFORMATION
  Report Type: 
  Country: None (occurrence: None)
  Receive Date: 20120501
  Receipt Date: 20120425
  Transmission Date: 20120825
  Serious: Yes (Hospitalization, Other)
  Sender: FDA-Public Use
  Company Number: PHFR2012IE000884

PATIENT
  Sex: Female

DRUGS (9)
  1. CLOZARIL [Suspect]
     Dosage: 150 MG
     Route: 048
     Dates: start: 20120221
  2. VALPROATE SODIUM [Concomitant]
  3. ABILIFY [Concomitant]
  4. LEVOTHYROXINE SODIUM [Concomitant]
  5. TRIMETHOPRIM [Concomitant]
  6. CLOZARIL [Suspect]
     Indication: SCHIZOPHRENIA
     Dosage: UNK UKN, UNK
     Route: 048
     Dates: start: 20111025, end: 20120124
  7. EFFEXOR [Concomitant]
  8. VALPROIC ACID [Concomitant]
  9. VENLAFAXINE [Concomitant]

REACTIONS (5)
  - PAIN IN EXTREMITY [None]
  - NEUTROPENIA [None]
  - WHITE BLOOD CELL COUNT DECREASED [None]
  - ABDOMINAL PAIN UPPER [None]
  - NEUTROPHIL COUNT DECREASED [None]
